FAERS Safety Report 17670021 (Version 2)
Quarter: 2020Q2

REPORT INFORMATION
  Report Type: Spontaneous
  Country: US (occurrence: US)
  Receive Date: 20200415
  Receipt Date: 20200423
  Transmission Date: 20200713
  Serious: No
  Sender: FDA-Public Use
  Company Number: US-PFIZER INC-2019135065

PATIENT
  Age: 71 Year
  Sex: Female

DRUGS (2)
  1. RELPAX [Suspect]
     Active Substance: ELETRIPTAN HYDROBROMIDE
     Indication: MIGRAINE
     Dosage: 40 MG, AS NEEDED (1 PO PRN, MAY REPEAT IN 2 HOURS X 1 PRN AS DIRECTED, 90DAYS)
     Route: 048
  2. RELPAX [Suspect]
     Active Substance: ELETRIPTAN HYDROBROMIDE
     Indication: HEADACHE
     Dosage: 40 MG, AS NEEDED (1 PO PRN, MAY REPEAT IN 2 HOURS X 1 PRN AS DIRECTED, 90DAYS)
     Route: 048

REACTIONS (3)
  - Poor quality product administered [Unknown]
  - Product packaging difficult to open [Unknown]
  - Product physical issue [Unknown]
